FAERS Safety Report 6910182-5 (Version None)
Quarter: 2010Q3

REPORT INFORMATION
  Report Type: 
  Country: None (occurrence: None)
  Receive Date: 20100708
  Receipt Date: 20090827
  Transmission Date: 20110219
  Serious: Yes (Other)
  Sender: FDA-Public Use
  Company Number: 2009262055

PATIENT
  Age: 54 Year

DRUGS (1)
  1. CHANTIX [Suspect]
     Dosage: , ORAL
     Route: 048

REACTIONS (1)
  - SUICIDE ATTEMPT [None]
